FAERS Safety Report 5773886-6 (Version None)
Quarter: 2008Q2

REPORT INFORMATION
  Report Type: 
  Country: None (occurrence: None)
  Receive Date: 20080616
  Receipt Date: 20080612
  Transmission Date: 20081010
  Serious: Yes (Hospitalization)
  Sender: FDA-Public Use
  Company Number: A0732680A

PATIENT
  Sex: Female

DRUGS (4)
  1. IMITREX [Suspect]
     Indication: MIGRAINE
     Dosage: 100MG AS REQUIRED
     Route: 048
  2. FIORINAL [Suspect]
     Indication: TENSION HEADACHE
     Route: 048
  3. REGLAN [Suspect]
     Indication: NAUSEA
     Route: 065
     Dates: start: 20080606
  4. BLOOD PRESSURE MEDICATION [Concomitant]

REACTIONS (3)
  - HEADACHE [None]
  - HEART RATE IRREGULAR [None]
  - NAUSEA [None]
